FAERS Safety Report 10663832 (Version 1)
Quarter: 2014Q4

REPORT INFORMATION
  Report Type: Spontaneous
  Country: US (occurrence: US)
  Receive Date: 20141219
  Receipt Date: 20141219
  Transmission Date: 20150529
  Serious: No
  Sender: FDA-Public Use
  Company Number: US-009507513-1412USA004011

PATIENT
  Age: 23 Year
  Sex: Female
  Weight: 129.39 kg

DRUGS (1)
  1. NEXPLANON [Suspect]
     Active Substance: ETONOGESTREL
     Indication: CONTRACEPTION
     Dosage: 1 ROD/3 YEARS
     Route: 059
     Dates: start: 201307

REACTIONS (6)
  - Limb discomfort [Unknown]
  - Implant site pain [Unknown]
  - Vomiting [Unknown]
  - Implant site abscess [Unknown]
  - Device breakage [Unknown]
  - Nausea [Unknown]

NARRATIVE: CASE EVENT DATE: 20141129
